FAERS Safety Report 15857778 (Version 1)
Quarter: 2018Q4

REPORT INFORMATION
  Report Type: Spontaneous
  Country: US (occurrence: US)
  Receive Date: 20181228
  Receipt Date: 20181228
  Transmission Date: 20190205
  Serious: Yes (Hospitalization)
  Sender: FDA-Public Use
  Company Number: None

PATIENT
  Age: 62 Year
  Sex: Male

DRUGS (11)
  1. BENZONATE [Concomitant]
     Active Substance: BENZONATATE
  2. ESOMEPRA MAG [Concomitant]
  3. METOPROL TAR [Concomitant]
  4. PREDNISONE. [Concomitant]
     Active Substance: PREDNISONE
  5. SIMVASTATIN. [Concomitant]
     Active Substance: SIMVASTATIN
  6. ASPIRIN. [Concomitant]
     Active Substance: ASPIRIN
  7. SILDENAFIL. [Concomitant]
     Active Substance: SILDENAFIL
  8. MELOXICAM. [Concomitant]
     Active Substance: MELOXICAM
  9. HUMIRA [Suspect]
     Active Substance: ADALIMUMAB
     Indication: PSORIASIS
     Route: 058
     Dates: start: 20180110
  10. DOXYCYCL HYC 100 MG GENERIC FOR VIBRA TAB 100 MG [Concomitant]
     Active Substance: DOXYCYCLINE HYCLATE
  11. LOSARTAN POT [Concomitant]
     Active Substance: LOSARTAN POTASSIUM

REACTIONS (1)
  - Bronchitis [None]

NARRATIVE: CASE EVENT DATE: 20181222
